FAERS Safety Report 19047816 (Version 1)
Quarter: 2021Q1

REPORT INFORMATION
  Report Type: Spontaneous
  Country: MX (occurrence: MX)
  Receive Date: 20210324
  Receipt Date: 20210324
  Transmission Date: 20210420
  Serious: Yes (Death, Hospitalization, Other)
  Sender: FDA-Public Use
  Company Number: MX-AMGEN-MEXSP2021041184

PATIENT
  Age: 35 Year
  Sex: Male

DRUGS (11)
  1. MEROPENEM. [Concomitant]
     Active Substance: MEROPENEM
     Indication: FEBRILE NEUTROPENIA
     Dosage: 2 GRAM, TID
  2. FILGRASTIM [Suspect]
     Active Substance: FILGRASTIM
     Indication: NEUTROPENIA
     Route: 065
  3. IMIPENEM [Concomitant]
     Active Substance: IMIPENEM
     Dosage: 1 GRAM, TID
  4. VANCOMYCIN [Concomitant]
     Active Substance: VANCOMYCIN
  5. AZTREONAM. [Concomitant]
     Active Substance: AZTREONAM
     Indication: PNEUMONIA KLEBSIELLA
  6. CEFTAZIDIME. [Concomitant]
     Active Substance: CEFTAZIDIME
     Indication: FEBRILE NEUTROPENIA
     Dosage: 2?0.5 G , TID
  7. CEFTAZIDIME. [Concomitant]
     Active Substance: CEFTAZIDIME
     Indication: PNEUMONIA KLEBSIELLA
  8. COLISTIN [Concomitant]
     Active Substance: COLISTIN
     Indication: FEBRILE NEUTROPENIA
     Dosage: LOADING DOSE OF 300 MG, AFTER WHICH 150 MG TID FOLLOWED
  9. AZTREONAM. [Concomitant]
     Active Substance: AZTREONAM
     Indication: FEBRILE NEUTROPENIA
     Dosage: 2 GRAM, TID
  10. MEROPENEM. [Concomitant]
     Active Substance: MEROPENEM
     Indication: PNEUMONIA KLEBSIELLA
  11. COLISTIN [Concomitant]
     Active Substance: COLISTIN
     Indication: PNEUMONIA KLEBSIELLA

REACTIONS (3)
  - Klebsiella bacteraemia [Unknown]
  - Aplastic anaemia [Fatal]
  - Febrile neutropenia [Recovered/Resolved]
